FAERS Safety Report 12059678 (Version 2)
Quarter: 2016Q4

REPORT INFORMATION
  Report Type: Other
  Country: FR (occurrence: FR)
  Receive Date: 20160210
  Receipt Date: 20161109
  Transmission Date: 20170206
  Serious: Yes (Hospitalization)
  Sender: FDA-Public Use
  Company Number: FR-SYMPLMED PHARMACEUTICALS-2016SYMPLMED000138

PATIENT

DRUGS (6)
  1. CARDENSIEL [Concomitant]
     Active Substance: BISOPROLOL FUMARATE
     Indication: PRODUCT USED FOR UNKNOWN INDICATION
     Dosage: 5 MG, QD
  2. PREVISCAN                          /00789001/ [Suspect]
     Active Substance: FLUINDIONE
     Indication: PRODUCT USED FOR UNKNOWN INDICATION
     Dosage: 20 MG, QD
     Route: 048
     Dates: start: 201501, end: 20150625
  3. LASILIX                            /00032601/ [Suspect]
     Active Substance: FUROSEMIDE
     Indication: PRODUCT USED FOR UNKNOWN INDICATION
     Dosage: 3 (40 MG) DF, QD
     Route: 048
     Dates: start: 201501, end: 20150729
  4. CLAMOXYL                           /00249602/ [Concomitant]
     Active Substance: AMOXICILLIN
     Indication: PRODUCT USED FOR UNKNOWN INDICATION
     Dosage: 2 G, TID
     Dates: start: 201504, end: 201504
  5. COVERSYL [Suspect]
     Active Substance: PERINDOPRIL
     Indication: PRODUCT USED FOR UNKNOWN INDICATION
     Dosage: UNK
     Route: 048
     Dates: end: 20150625
  6. PLAVIX [Concomitant]
     Active Substance: CLOPIDOGREL BISULFATE
     Indication: PRODUCT USED FOR UNKNOWN INDICATION
     Dosage: 75 MG, QD

REACTIONS (4)
  - Acute kidney injury [Unknown]
  - Tubulointerstitial nephritis [Not Recovered/Not Resolved]
  - Tremor [Unknown]
  - Muscular weakness [Unknown]

NARRATIVE: CASE EVENT DATE: 20150625
